FAERS Safety Report 4619868-9 (Version None)
Quarter: 2005Q1

REPORT INFORMATION
  Report Type: 
  Country: None (occurrence: None)
  Receive Date: 20050328
  Receipt Date: 20050316
  Transmission Date: 20050727
  Serious: Yes (Other)
  Sender: FDA-Public Use
  Company Number: US-JNJFOC-20041104576

PATIENT
  Sex: Female
  Weight: 63.5 kg

DRUGS (2)
  1. REMICADE [Suspect]
     Route: 042
  2. REMICADE [Suspect]
     Indication: CROHN'S DISEASE
     Dosage: LAST INFUSION
     Route: 042

REACTIONS (5)
  - CYANOSIS [None]
  - MUSCLE SPASMS [None]
  - NERVE INJURY [None]
  - PALLOR [None]
  - SWELLING [None]
